APPROVED DRUG PRODUCT: CHOLESTYRAMINE
Active Ingredient: CHOLESTYRAMINE
Strength: EQ 4GM RESIN/SCOOPFUL
Dosage Form/Route: POWDER;ORAL
Application: A074771 | Product #002
Applicant: IVAX PHARMACEUTICALS INC SUB TEVA PHARMACEUTICALS USA
Approved: Jul 9, 1997 | RLD: No | RS: No | Type: DISCN